FAERS Safety Report 21974480 (Version 1)
Quarter: 2023Q1

REPORT INFORMATION
  Report Type: Spontaneous
  Country: US (occurrence: None)
  Receive Date: 20230208
  Receipt Date: 20230208
  Transmission Date: 20230417
  Serious: Yes (Hospitalization)
  Sender: FDA-Public Use
  Company Number: None

PATIENT
  Age: 62 Year
  Sex: Female
  Weight: 76.07 kg

DRUGS (34)
  1. BOSULIF [Suspect]
     Active Substance: BOSUTINIB MONOHYDRATE
     Indication: Acute lymphocytic leukaemia
     Dosage: FREQUENCY : DAILY;?
     Route: 048
     Dates: start: 20220820
  2. ACYCLOVIR [Concomitant]
  3. AMOXICILLIN [Concomitant]
  4. ATORVASTATIN [Concomitant]
  5. BACTRIM [Concomitant]
  6. DEEP SEA NASAL SPRAY [Concomitant]
  7. EYSUVIS OPHTHALMIC SUSPENSION [Concomitant]
  8. FAMOTIDINE [Concomitant]
  9. FLU VACCINE [Concomitant]
  10. GABAPENTIN [Concomitant]
  11. LEVOTHYROXINE [Concomitant]
  12. LIDOCAINE-EPINEPHRINE [Concomitant]
  13. LOSARTAN [Concomitant]
  14. MELATONIN [Suspect]
     Active Substance: MELATONIN
  15. METFORMIN [Concomitant]
  16. METOPROLOL SUCCINATE [Concomitant]
  17. MODERNA COVID-19 VACCINE [Concomitant]
  18. MOTRIN [Concomitant]
  19. MULTIVITAMIN [Concomitant]
  20. NORCO [Concomitant]
     Active Substance: ACETAMINOPHEN\HYDROCODONE BITARTRATE
  21. OLANZAPINE [Concomitant]
  22. ONDANSETRON [Concomitant]
  23. PERCOCET [Concomitant]
  24. PROCHLORAPERAZINE [Concomitant]
  25. RESTASIS [Concomitant]
  26. RETAINE [Concomitant]
  27. SENNA [Concomitant]
     Active Substance: SENNA LEAF\SENNOSIDES\SENNOSIDES A AND B
  28. TRIAMTERINE/HCTZ [Concomitant]
  29. TUMS [Concomitant]
  30. TYLENOL [Concomitant]
  31. VITAMIN B [Concomitant]
  32. VITAMIN C [Concomitant]
  33. VLINCYTO [Concomitant]
  34. ZINC [Concomitant]
     Active Substance: ZINC

REACTIONS (1)
  - Hospitalisation [None]
